FAERS Safety Report 9241243 (Version 3)
Quarter: 2014Q4

REPORT INFORMATION
  Report Type: Spontaneous
  Country: US (occurrence: US)
  Receive Date: 20130419
  Receipt Date: 20141230
  Transmission Date: 20150529
  Serious: Yes (Hospitalization)
  Sender: FDA-Public Use
  Company Number: US-BAYER-2013-048707

PATIENT
  Age: 26 Year
  Sex: Female
  Weight: 54.42 kg

DRUGS (2)
  1. YASMIN [Suspect]
     Active Substance: DROSPIRENONE\ETHINYL ESTRADIOL
     Indication: CONTRACEPTION
     Dosage: UNK
     Route: 048
     Dates: start: 2008, end: 2012
  2. MOTRIN [Concomitant]
     Active Substance: IBUPROFEN

REACTIONS (4)
  - Pulmonary embolism [None]
  - Pain [None]
  - Pulmonary infarction [None]
  - Injury [None]

NARRATIVE: CASE EVENT DATE: 20120704
